FAERS Safety Report 5195899-8 (Version None)
Quarter: 2007Q1

REPORT INFORMATION
  Report Type: 
  Country: None (occurrence: None)
  Receive Date: 20070102
  Receipt Date: 20061225
  Transmission Date: 20070707
  Serious: Yes (Other)
  Sender: FDA-Public Use
  Company Number: JP-SANOFI-SYNTHELABO-A01200610613

PATIENT
  Sex: Male
  Weight: 60 kg

DRUGS (5)
  1. NITROGLYCERIN [Concomitant]
     Route: 060
     Dates: start: 20061004, end: 20061018
  2. BENZBROMARONE [Concomitant]
     Route: 048
     Dates: start: 20060510, end: 20061018
  3. LEUCOVORIN CALCIUM [Suspect]
     Dosage: 300 MG/BODY=186.3 MG/M2, INFUSION D1+2
     Route: 042
     Dates: start: 20061018, end: 20061019
  4. FLUOROURACIL [Suspect]
     Dosage: 600 MG/BODY=372.7 MG/M2 IN BOLUS THEN 3750 MG/BODY=2329.2 MG/M2 AS INFUSION
     Route: 042
     Dates: start: 20061018, end: 20061019
  5. OXALIPLATIN [Suspect]
     Indication: COLON CANCER
     Route: 042
     Dates: start: 20061018, end: 20061018

REACTIONS (1)
  - ANGINA PECTORIS [None]
